FAERS Safety Report 4643220-3 (Version None)
Quarter: 2005Q2

REPORT INFORMATION
  Report Type: 
  Country: None (occurrence: None)
  Receive Date: 20050422
  Receipt Date: 20050412
  Transmission Date: 20051028
  Serious: Yes (Hospitalization)
  Sender: FDA-Public Use
  Company Number: NO-MERCK-0504NOR00019

PATIENT
  Age: 47 Year
  Sex: Male

DRUGS (2)
  1. VIOXX [Suspect]
     Indication: SCIATICA
     Route: 048
     Dates: start: 20020808, end: 20020801
  2. ACETAMINOPHEN AND CODEINE PHOSPHATE [Concomitant]
     Route: 048

REACTIONS (2)
  - BLOOD PRESSURE INCREASED [None]
  - MYOCARDIAL INFARCTION [None]
